FAERS Safety Report 5754679-2 (Version None)
Quarter: 2008Q2

REPORT INFORMATION
  Report Type: 
  Country: None (occurrence: None)
  Receive Date: 20080530
  Receipt Date: 20080520
  Transmission Date: 20081010
  Serious: Yes (Other)
  Sender: FDA-Public Use
  Company Number: US-PFIZER INC-2008043890

PATIENT

DRUGS (1)
  1. CHANTIX [Suspect]

REACTIONS (2)
  - DEPRESSED MOOD [None]
  - GAMBLING [None]
